FAERS Safety Report 9399207 (Version 1)
Quarter: 2013Q3

REPORT INFORMATION
  Report Type: Spontaneous
  Country: BE (occurrence: None)
  Receive Date: 20130709
  Receipt Date: 20130709
  Transmission Date: 20140515
  Serious: Yes (Other)
  Sender: FDA-Public Use
  Company Number: AUR-APL-2013-05792

PATIENT
  Age: 86 Year
  Sex: Male

DRUGS (2)
  1. AMOXICILLIN+CLAVULANIC ACID (AMOXICILLIN, CLAVULANIC ACID) [Suspect]
     Indication: CHRONIC OBSTRUCTIVE PULMONARY DISEASE
  2. AMOXICILLIN+CLAVULANIC ACID (AMOXICILLIN, CLAVULANIC ACID) [Suspect]
     Indication: LOBAR PNEUMONIA

REACTIONS (1)
  - Respiratory failure [None]
